FAERS Safety Report 10567056 (Version 2)
Quarter: 2014Q4

REPORT INFORMATION
  Report Type: Report from Study
  Country: MX (occurrence: MX)
  Receive Date: 20141105
  Receipt Date: 20141204
  Transmission Date: 20150529
  Serious: Yes (Other)
  Sender: FDA-Public Use
  Company Number: PHHY2014MX144350

PATIENT
  Age: 67 Year
  Sex: Female

DRUGS (7)
  1. TAFIL [Concomitant]
     Active Substance: ALPRAZOLAM
     Indication: ANXIETY
  2. KARET [Concomitant]
     Indication: THYROID DISORDER
     Dosage: 1 DF, QD
     Route: 065
     Dates: start: 2011
  3. TAFIL [Concomitant]
     Active Substance: ALPRAZOLAM
     Indication: FEELING OF DESPAIR
  4. TAFIL [Concomitant]
     Active Substance: ALPRAZOLAM
     Indication: ANXIETY
     Dosage: 1 DF, QD
     Route: 065
  5. ACLASTA [Suspect]
     Active Substance: ZOLEDRONIC ACID
     Indication: OSTEOPOROSIS
     Dosage: 5 MG/100 ML ANNUAL
     Route: 042
     Dates: start: 201201
  6. CO-DIOVAN [Suspect]
     Active Substance: HYDROCHLOROTHIAZIDE\VALSARTAN
     Indication: HYPERTENSION
     Dosage: 1 DF, QD
     Route: 065
     Dates: start: 2012
  7. SENNOKOTT [Concomitant]
     Indication: CONSTIPATION
     Dosage: 2 OR 3
     Route: 065

REACTIONS (9)
  - Hypokinesia [Recovered/Resolved]
  - Pain [Recovered/Resolved]
  - Vomiting [Recovered/Resolved]
  - Diarrhoea [Recovered/Resolved]
  - Clavicle fracture [Unknown]
  - Malaise [Recovered/Resolved]
  - Fatigue [Recovered/Resolved]
  - Fall [Unknown]
  - Arthritis [Recovered/Resolved]

NARRATIVE: CASE EVENT DATE: 2012
